FAERS Safety Report 6263693-2 (Version None)
Quarter: 2009Q3

REPORT INFORMATION
  Report Type: 
  Country: None (occurrence: None)
  Receive Date: 20090710
  Receipt Date: 20090630
  Transmission Date: 20100115
  Serious: Yes (Hospitalization)
  Sender: FDA-Public Use
  Company Number: DE-PFIZER INC-2009207606

PATIENT
  Age: 64 Year

DRUGS (8)
  1. SUNITINIB MALATE [Suspect]
     Indication: COLORECTAL CANCER METASTATIC
     Dosage: 37.5 MG, 1X/DAY
     Route: 048
     Dates: start: 20081110, end: 20090420
  2. IRINOTECAN HCL [Suspect]
     Indication: COLORECTAL CANCER METASTATIC
     Dosage: 180 MG/M2, EVERY 2 WEEKS
     Route: 042
     Dates: start: 20081110
  3. FLUOROURACIL [Suspect]
     Indication: COLORECTAL CANCER METASTATIC
     Dosage: 400 MG/M2, EVERY 2 WEEKS;
     Route: 040
     Dates: start: 20081110
  4. FLUOROURACIL [Suspect]
     Dosage: 2400 MG/M2, EVERY 2 WEEKS;
     Route: 041
     Dates: start: 20081110
  5. FOLINIC ACID [Suspect]
     Indication: COLORECTAL CANCER METASTATIC
     Dosage: 200 MG/M2, 1X/DAY
     Route: 042
     Dates: start: 20081110
  6. ENALAPRIL [Concomitant]
     Dosage: UNK
     Route: 048
  7. ATENOLOL [Concomitant]
     Dosage: UNK
     Route: 048
  8. PANTOZOL [Concomitant]
     Route: 048

REACTIONS (1)
  - SKIN ULCER [None]
